FAERS Safety Report 8363067-4 (Version None)
Quarter: 2012Q2

REPORT INFORMATION
  Report Type: 
  Country: None (occurrence: None)
  Receive Date: 20120516
  Receipt Date: 20111014
  Transmission Date: 20120825
  Serious: Yes (Hospitalization)
  Sender: FDA-Public Use
  Company Number: US-ALEXION-A201101568

PATIENT
  Sex: Female

DRUGS (5)
  1. SOLIRIS [Suspect]
     Indication: PAROXYSMAL NOCTURNAL HAEMOGLOBINURIA
     Dosage: 600 MG QW
     Route: 042
     Dates: start: 20110819
  2. VITAMIN TAB [Concomitant]
     Dosage: UNK QD
     Route: 048
  3. FOLIC ACID [Concomitant]
     Dosage: 800 MCG QD
  4. SYNTHROID [Concomitant]
     Dosage: UNK QD
     Route: 048
  5. SOLIRIS [Suspect]
     Dosage: 900 MG Q2W
     Route: 042

REACTIONS (1)
  - MASTECTOMY [None]
